FAERS Safety Report 5467931-5 (Version None)
Quarter: 2007Q3

REPORT INFORMATION
  Report Type: 
  Country: None (occurrence: None)
  Receive Date: 20070924
  Receipt Date: 20070919
  Transmission Date: 20080115
  Serious: Yes (Death, Other)
  Sender: FDA-Public Use
  Company Number: 130-C5013-07040980

PATIENT
  Age: 57 Year
  Sex: Female
  Weight: 62 kg

DRUGS (6)
  1. CC-5013 (LENALIDOMIDE) (CAPSULES) [Suspect]
     Indication: MYELODYSPLASTIC SYNDROME
     Dosage: DAILY, ORAL
     Route: 048
     Dates: start: 20070118, end: 20070220
  2. LACTULOSE [Concomitant]
  3. OMEPRAZOLE [Concomitant]
  4. ALLOPURINOL [Concomitant]
  5. CIPROFLOXACIN [Concomitant]
  6. SENNA (SENNA) [Concomitant]

REACTIONS (9)
  - ACUTE MYELOID LEUKAEMIA [None]
  - BLAST CELLS PRESENT [None]
  - BONE MARROW DISORDER [None]
  - DISEASE PROGRESSION [None]
  - FIBROSIS [None]
  - MYELODYSPLASTIC SYNDROME [None]
  - NO THERAPEUTIC RESPONSE [None]
  - PANCYTOPENIA [None]
  - SPLENOMEGALY [None]
